FAERS Safety Report 5501490-3 (Version None)
Quarter: 2007Q4

REPORT INFORMATION
  Report Type: 
  Country: None (occurrence: None)
  Receive Date: 20071019
  Receipt Date: 20070720
  Transmission Date: 20080405
  Serious: Yes (Other)
  Sender: FDA-Public Use
  Company Number: HQWYE209124JUL07

PATIENT
  Age: 68 Year
  Sex: Female
  Weight: 65.83 kg

DRUGS (3)
  1. ADVIL PM [Suspect]
     Indication: INSOMNIA
     Dosage: 1 CAPLET AS NEEDED, ORAL
     Route: 048
     Dates: start: 20070401, end: 20070719
  2. COZAAR [Concomitant]
  3. HYDROCHLOROTHIAZIDE [Concomitant]

REACTIONS (1)
  - MUSCLE SPASMS [None]
